FAERS Safety Report 8735519 (Version 4)
Quarter: 2014Q1

REPORT INFORMATION
  Report Type: Spontaneous
  Country: BR (occurrence: BR)
  Receive Date: 20120822
  Receipt Date: 20140225
  Transmission Date: 20141002
  Serious: Yes (Death, Other)
  Sender: FDA-Public Use
  Company Number: PHHY2012BR071543

PATIENT
  Sex: Male
  Weight: 95 kg

DRUGS (4)
  1. TRILEPTAL [Suspect]
     Indication: CONVULSION
     Dosage: 600 MG, Q12H
     Dates: start: 20111105
  2. LAMITOR [Concomitant]
     Route: 048
     Dates: start: 20111105
  3. APRESOLINA [Concomitant]
     Indication: HYPERTENSION
     Route: 048
     Dates: start: 20111105
  4. OMEPRAZOLE [Concomitant]
     Indication: PROPHYLAXIS
     Dosage: UNK UKN, UNK
     Dates: start: 20111105

REACTIONS (6)
  - Metastasis [Fatal]
  - Renal cancer [Fatal]
  - Metastases to lung [Fatal]
  - Cerebrovascular accident [Fatal]
  - Asthenia [Fatal]
  - Effusion [Unknown]
